FAERS Safety Report 25321395 (Version 3)
Quarter: 2025Q3

REPORT INFORMATION
  Report Type: Report from Study
  Country: JP (occurrence: JP)
  Receive Date: 20250516
  Receipt Date: 20250808
  Transmission Date: 20251020
  Serious: Yes (Other)
  Sender: TAKEDA
  Company Number: JP-TAKEDA-2025TJP004510

PATIENT
  Sex: Female
  Weight: 42 kg

DRUGS (9)
  1. MARIBAVIR [Suspect]
     Active Substance: MARIBAVIR
     Indication: Cytomegalovirus infection
     Dates: start: 20241018, end: 20241031
  2. MARIBAVIR [Suspect]
     Active Substance: MARIBAVIR
     Dates: start: 20241118, end: 20241216
  3. MARIBAVIR [Suspect]
     Active Substance: MARIBAVIR
     Dates: start: 20241228, end: 20250116
  4. MARIBAVIR [Suspect]
     Active Substance: MARIBAVIR
     Dates: start: 20250303, end: 20250327
  5. TACROLIMUS [Concomitant]
     Active Substance: TACROLIMUS
  6. ATOVAQUONE [Concomitant]
     Active Substance: ATOVAQUONE
  7. ACYCLOVIR [Concomitant]
     Active Substance: ACYCLOVIR
  8. VONOPRAZAN FUMARATE [Concomitant]
     Active Substance: VONOPRAZAN FUMARATE
  9. FLUCONAZOLE [Concomitant]
     Active Substance: FLUCONAZOLE

REACTIONS (4)
  - Pneumonia bacterial [Recovered/Resolved]
  - Pneumonia bacterial [Recovered/Resolved]
  - Chronic graft versus host disease in liver [Recovering/Resolving]
  - Chronic graft versus host disease in skin [Recovering/Resolving]

NARRATIVE: CASE EVENT DATE: 20241205
